FAERS Safety Report 24411226 (Version 1)
Quarter: 2024Q4

REPORT INFORMATION
  Report Type: Spontaneous
  Country: DE (occurrence: DE)
  Receive Date: 20241008
  Receipt Date: 20241008
  Transmission Date: 20250115
  Serious: Yes (Life-Threatening, Hospitalization, Other)
  Sender: TORRENT
  Company Number: DE-TORRENT-00027364

PATIENT
  Age: 18 Year
  Sex: Female
  Weight: 55 kg

DRUGS (1)
  1. VENLAFAXINE [Suspect]
     Active Substance: VENLAFAXINE HYDROCHLORIDE
     Indication: Product used for unknown indication
     Dosage: 100 TABLETS OF VENLAFAXINE 225MG (TOTAL DOSE: 22.5G)
     Route: 065

REACTIONS (20)
  - Toxicity to various agents [Unknown]
  - Disturbance in attention [Unknown]
  - Hypoglycaemia [Unknown]
  - Cardiac arrest [Unknown]
  - Seizure [Unknown]
  - Multiple organ dysfunction syndrome [Unknown]
  - Sinus tachycardia [Unknown]
  - Ventricular tachycardia [Unknown]
  - Intentional overdose [Unknown]
  - Left ventricular dysfunction [Recovered/Resolved]
  - Ventricular hypokinesia [Unknown]
  - Mydriasis [Unknown]
  - Renal failure [Recovered/Resolved]
  - Hepatic failure [Recovered/Resolved]
  - Ischaemia [Unknown]
  - Rhabdomyolysis [Unknown]
  - Compartment syndrome [Unknown]
  - Vasospasm [Unknown]
  - Lactic acidosis [Unknown]
  - Suicidal ideation [Unknown]
